FAERS Safety Report 4813298-2 (Version None)
Quarter: 2005Q4

REPORT INFORMATION
  Report Type: 
  Country: None (occurrence: None)
  Receive Date: 20051028
  Receipt Date: 20050425
  Transmission Date: 20060501
  Serious: Yes (Hospitalization)
  Sender: FDA-Public Use
  Company Number: US-GLAXOSMITHKLINE-A0555612A

PATIENT
  Age: 59 Year
  Sex: Female

DRUGS (4)
  1. ADVAIR DISKUS 100/50 [Suspect]
     Indication: ASTHMA
     Dosage: 1PUFF TWICE PER DAY
     Route: 055
     Dates: start: 20050405
  2. ALBUTEROL [Concomitant]
  3. SYNTHROID [Concomitant]
  4. NORFLEX [Concomitant]

REACTIONS (3)
  - CANDIDIASIS [None]
  - DRUG INEFFECTIVE [None]
  - PNEUMONIA [None]
